FAERS Safety Report 17209063 (Version 4)
Quarter: 2020Q3

REPORT INFORMATION
  Report Type: Spontaneous
  Country: HK (occurrence: HK)
  Receive Date: 20191227
  Receipt Date: 20200903
  Transmission Date: 20201102
  Serious: Yes (Other)
  Sender: FDA-Public Use
  Company Number: HK-MYLANLABS-2019M1130149

PATIENT

DRUGS (5)
  1. TELBIVUDINE [Suspect]
     Active Substance: TELBIVUDINE
     Dosage: 600 MILLIGRAM, QD
     Route: 048
  2. TENOFOVIR DISOPROXIL [Suspect]
     Active Substance: TENOFOVIR DISOPROXIL
     Indication: CHRONIC KIDNEY DISEASE
     Dosage: UNK
     Route: 065
  3. LAMIVUDINE. [Suspect]
     Active Substance: LAMIVUDINE
     Indication: CHRONIC KIDNEY DISEASE
     Dosage: UNK
     Route: 065
  4. TELBIVUDINE [Suspect]
     Active Substance: TELBIVUDINE
     Indication: CHRONIC HEPATITIS B
     Dosage: UNK
     Route: 065
  5. TENOFOVIR DISOPROXIL [Suspect]
     Active Substance: TENOFOVIR DISOPROXIL
     Indication: CHRONIC HEPATITIS B

REACTIONS (3)
  - Product use in unapproved indication [Unknown]
  - Chronic kidney disease [Not Recovered/Not Resolved]
  - Disease progression [Not Recovered/Not Resolved]
